FAERS Safety Report 8460619-8 (Version None)
Quarter: 2012Q2

REPORT INFORMATION
  Report Type: 
  Country: None (occurrence: None)
  Receive Date: 20120622
  Receipt Date: 20120613
  Transmission Date: 20120825
  Serious: Yes (Hospitalization)
  Sender: FDA-Public Use
  Company Number: US-ASTRAZENECA-2012SE39605

PATIENT
  Age: 86 Year
  Sex: Female

DRUGS (4)
  1. FERROUS SULFATE TAB [Suspect]
     Route: 048
  2. SIMVASTATIN [Suspect]
     Route: 048
  3. LISINOPRIL [Suspect]
     Route: 048
  4. ASPIRIN [Suspect]
     Route: 048

REACTIONS (2)
  - OESOPHAGITIS [None]
  - DYSPHAGIA [None]
